FAERS Safety Report 23696936 (Version 1)
Quarter: 2024Q2

REPORT INFORMATION
  Report Type: Spontaneous
  Country: DE (occurrence: DE)
  Receive Date: 20240402
  Receipt Date: 20240402
  Transmission Date: 20240715
  Serious: Yes (Hospitalization, Other)
  Sender: FDA-Public Use
  Company Number: DE-BIOCODEX2-201801678

PATIENT
  Age: 3 Year
  Sex: Male

DRUGS (4)
  1. VALPROIC ACID [Suspect]
     Active Substance: VALPROIC ACID
     Indication: Product used for unknown indication
     Dosage: 600 MILLIGRAM, QD
     Route: 048
     Dates: start: 20180901
  2. CLOBAZAM [Suspect]
     Active Substance: CLOBAZAM
     Indication: Epilepsy
     Dosage: UNK
     Route: 065
  3. DIACOMIT [Suspect]
     Active Substance: STIRIPENTOL
     Indication: Severe myoclonic epilepsy of infancy
     Dosage: 46 MILLIGRAM/KILOGRAM, QD (700MG PER DAY)
     Route: 048
     Dates: start: 20180901
  4. DIACOMIT [Suspect]
     Active Substance: STIRIPENTOL
     Dosage: 28 MILLIGRAM/KILOGRAM, QD
     Route: 048

REACTIONS (5)
  - Epilepsy [Recovered/Resolved]
  - Body temperature increased [Unknown]
  - Bradycardia [Recovered/Resolved]
  - Rash [Unknown]
  - Product use in unapproved indication [Recovered/Resolved]
